FAERS Safety Report 6074892-7 (Version None)
Quarter: 2009Q1

REPORT INFORMATION
  Report Type: 
  Country: None (occurrence: None)
  Receive Date: 20090212
  Receipt Date: 20090210
  Transmission Date: 20090719
  Serious: Yes (Hospitalization)
  Sender: FDA-Public Use
  Company Number: SE-BRISTOL-MYERS SQUIBB COMPANY-14501068

PATIENT
  Age: 84 Year
  Sex: Male

DRUGS (9)
  1. HYDREA [Suspect]
     Indication: MYELOPROLIFERATIVE DISORDER
     Dosage: INITIALLY DRUG INTERRUPTED;THEN DOSE WAS TAPERED OFF/DISCONTINUED ON 21JAN2009
     Route: 048
     Dates: start: 20081205, end: 20090121
  2. HYDREA [Suspect]
     Indication: THROMBOCYTHAEMIA
     Dosage: INITIALLY DRUG INTERRUPTED;THEN DOSE WAS TAPERED OFF/DISCONTINUED ON 21JAN2009
     Route: 048
     Dates: start: 20081205, end: 20090121
  3. SIMVASTATIN [Concomitant]
  4. RAMIPRIL [Concomitant]
  5. PLENDIL [Concomitant]
  6. TROMBYL [Concomitant]
  7. KREDEX [Concomitant]
  8. IMOVANE [Concomitant]
  9. PERSANTINE [Concomitant]
     Dosage: PERSANTIN DEPOT PROLONGED RELEASE CAPSULE,HARD 200MG

REACTIONS (3)
  - LUNG INFILTRATION [None]
  - MYOCARDIAL INFARCTION [None]
  - PYREXIA [None]
